FAERS Safety Report 5446621-9 (Version None)
Quarter: 2007Q3

REPORT INFORMATION
  Report Type: 
  Country: None (occurrence: None)
  Receive Date: 20070907
  Receipt Date: 20070828
  Transmission Date: 20080115
  Serious: Yes (Hospitalization, Disabling, Other)
  Sender: FDA-Public Use
  Company Number: JP-PFIZER INC-2007060086

PATIENT
  Sex: Male

DRUGS (2)
  1. SULPERAZON [Suspect]
     Dosage: DAILY DOSE:1GRAM
     Dates: start: 20070717, end: 20070701
  2. VOLTAREN [Suspect]
     Dosage: DAILY DOSE:25MG
     Route: 054

REACTIONS (5)
  - CHOLANGITIS ACUTE [None]
  - DISEASE RECURRENCE [None]
  - HYPERHIDROSIS [None]
  - SHOCK [None]
  - URINARY INCONTINENCE [None]
